FAERS Safety Report 10740878 (Version 3)
Quarter: 2016Q1

REPORT INFORMATION
  Report Type: Spontaneous
  Country: US (occurrence: US)
  Receive Date: 20150127
  Receipt Date: 20160202
  Transmission Date: 20160525
  Serious: Yes (Hospitalization, Other)
  Sender: FDA-Public Use
  Company Number: US-PFIZER INC-2015028986

PATIENT
  Age: 69 Year
  Sex: Female
  Weight: 87 kg

DRUGS (1)
  1. XELJANZ [Suspect]
     Active Substance: TOFACITINIB CITRATE
     Indication: RHEUMATOID ARTHRITIS
     Dosage: 5 MG, 2X/DAY
     Route: 048
     Dates: end: 201511

REACTIONS (7)
  - Condition aggravated [Unknown]
  - Sinus disorder [Not Recovered/Not Resolved]
  - Staphylococcal infection [Unknown]
  - Rheumatoid arthritis [Unknown]
  - Asthenia [Unknown]
  - Hypoaesthesia [Recovering/Resolving]
  - Urinary tract infection [Recovering/Resolving]

NARRATIVE: CASE EVENT DATE: 20150116
